FAERS Safety Report 4653465-4 (Version None)
Quarter: 2005Q2

REPORT INFORMATION
  Report Type: 
  Country: None (occurrence: None)
  Receive Date: 20050503
  Receipt Date: 20050318
  Transmission Date: 20051028
  Serious: Yes (Hospitalization)
  Sender: FDA-Public Use
  Company Number: RENA-11299

PATIENT
  Age: 33 Year
  Sex: Male

DRUGS (5)
  1. RENAGEL [Suspect]
     Indication: HYPERPHOSPHATAEMIA
     Dosage: 1.6 G DAILY PO
     Route: 048
     Dates: start: 20050101, end: 20050303
  2. FOLIC ACID [Concomitant]
  3. CAPTOPRIL [Concomitant]
  4. PROPRANOLOL [Concomitant]
  5. CIMETIDINE [Concomitant]

REACTIONS (3)
  - BLOOD PHOSPHORUS DECREASED [None]
  - DRUG ERUPTION [None]
  - DRUG INEFFECTIVE [None]
